FAERS Safety Report 5285478-6 (Version None)
Quarter: 2007Q1

REPORT INFORMATION
  Report Type: 
  Country: None (occurrence: None)
  Receive Date: 20070328
  Receipt Date: 20070320
  Transmission Date: 20070707
  Serious: Yes (Other)
  Sender: FDA-Public Use
  Company Number: 2007EN000069

PATIENT
  Age: 48 Year
  Sex: Male
  Weight: 122.4712 kg

DRUGS (5)
  1. OPANA ER [Suspect]
     Indication: PAIN
     Dosage: 40 MG;Q12H;UNK
     Dates: start: 20061127, end: 20070209
  2. LUNESTA [Concomitant]
  3. SEROQUEL [Concomitant]
  4. REQUIP [Concomitant]
  5. BENICAR [Concomitant]

REACTIONS (1)
  - RHABDOMYOLYSIS [None]
